FAERS Safety Report 6787843-4 (Version None)
Quarter: 2010Q2

REPORT INFORMATION
  Report Type: 
  Country: None (occurrence: None)
  Receive Date: 20100623
  Receipt Date: 20070929
  Transmission Date: 20101027
  Serious: Yes (Other)
  Sender: FDA-Public Use
  Company Number: US-PFIZER INC-2007054428

PATIENT
  Sex: Female
  Weight: 84 kg

DRUGS (7)
  1. SUTENT [Suspect]
     Indication: METASTATIC RENAL CELL CARCINOMA
     Route: 048
     Dates: start: 20070618, end: 20070712
  2. PREDNISONE [Concomitant]
     Dates: start: 19930101
  3. PROTONIX [Concomitant]
     Dates: start: 20060701
  4. FOLIC ACID [Concomitant]
     Dates: start: 20060601
  5. WARFARIN SODIUM [Concomitant]
  6. COLACE [Concomitant]
  7. AMIODARONE HCL [Concomitant]
     Indication: ATRIAL FIBRILLATION
     Dates: start: 20070803

REACTIONS (5)
  - ABDOMINAL PAIN [None]
  - DYSGEUSIA [None]
  - GLOSSITIS [None]
  - INTESTINAL OBSTRUCTION [None]
  - STOMATITIS [None]
